FAERS Safety Report 15602691 (Version 3)
Quarter: 2019Q2

REPORT INFORMATION
  Report Type: Spontaneous
  Country: US (occurrence: US)
  Receive Date: 20181109
  Receipt Date: 20190506
  Transmission Date: 20190711
  Serious: Yes (Other)
  Sender: FDA-Public Use
  Company Number: US-SA-2018SA308275

PATIENT
  Age: 50 Year
  Sex: Female
  Weight: 61 kg

DRUGS (22)
  1. CATAPRES [Concomitant]
     Active Substance: CLONIDINE HYDROCHLORIDE
  2. COMPAZINE [Concomitant]
     Active Substance: PROCHLORPERAZINE MALEATE
  3. DOCETAXEL. [Suspect]
     Active Substance: DOCETAXEL
     Indication: BREAST CANCER
     Dosage: Q3W, 128MG,102MG,86MG
     Route: 042
     Dates: start: 20150828, end: 20150828
  4. HERCEPTIN [Concomitant]
     Active Substance: TRASTUZUMAB
  5. PHENERGAN [Concomitant]
     Active Substance: PROMETHAZINE HYDROCHLORIDE
  6. MELATONIN [Concomitant]
     Active Substance: MELATONIN
  7. REFRESH PM [PARAFFIN, LIQUID;WHITE SOFT PARAFFIN;WOOL ALCOHOLS] [Concomitant]
  8. INDERAL [Concomitant]
     Active Substance: PROPRANOLOL HYDROCHLORIDE
  9. MAXALT [Concomitant]
     Active Substance: RIZATRIPTAN BENZOATE
  10. TAMOXIFEN [Concomitant]
     Active Substance: TAMOXIFEN
  11. ARMOUR THYROID [Concomitant]
     Active Substance: THYROID, PORCINE
  12. DOCETAXEL. [Suspect]
     Active Substance: DOCETAXEL
     Dosage: Q3W, 128MG,102MG,86MG
     Route: 042
     Dates: start: 20160111, end: 20160111
  13. PARAPLATIN [Concomitant]
     Active Substance: CARBOPLATIN
  14. REFRESH PLUS [Concomitant]
     Active Substance: CARBOXYMETHYLCELLULOSE SODIUM
  15. NEURONTIN [Concomitant]
     Active Substance: GABAPENTIN
  16. TYLENOL [Concomitant]
     Active Substance: ACETAMINOPHEN
  17. LOTENSIN [Concomitant]
     Active Substance: BENAZEPRIL HYDROCHLORIDE
  18. LOTEMAX [Concomitant]
     Active Substance: LOTEPREDNOL ETABONATE
  19. ZOFRAN [Concomitant]
     Active Substance: ONDANSETRON HYDROCHLORIDE
  20. AMBIEN [Concomitant]
     Active Substance: ZOLPIDEM TARTRATE
  21. TOPAMAX [Concomitant]
     Active Substance: TOPIRAMATE
  22. TOBRADEX [Concomitant]
     Active Substance: DEXAMETHASONE\TOBRAMYCIN

REACTIONS (2)
  - Psychological trauma [Unknown]
  - Alopecia [Recovering/Resolving]

NARRATIVE: CASE EVENT DATE: 20160110
